FAERS Safety Report 21730949 (Version 3)
Quarter: 2022Q4

REPORT INFORMATION
  Report Type: Spontaneous
  Country: US (occurrence: US)
  Receive Date: 20221215
  Receipt Date: 20221229
  Transmission Date: 20230113
  Serious: No
  Sender: FDA-Public Use
  Company Number: US-LEO Pharma-347692

PATIENT
  Age: 86 Year
  Sex: Male

DRUGS (2)
  1. ADBRY [Suspect]
     Active Substance: TRALOKINUMAB-LDRM
     Indication: Product used for unknown indication
     Dosage: UNKNOWN
     Dates: start: 202209
  2. ADBRY [Suspect]
     Active Substance: TRALOKINUMAB-LDRM
     Indication: Product used for unknown indication
     Dosage: UNKNOWN
     Dates: start: 202209

REACTIONS (11)
  - Feeling abnormal [Unknown]
  - Erythema [Unknown]
  - Rash [Unknown]
  - Asthenia [Unknown]
  - Insomnia [Unknown]
  - Malaise [Not Recovered/Not Resolved]
  - Urticaria [Not Recovered/Not Resolved]
  - Condition aggravated [Unknown]
  - Nausea [Unknown]
  - Chills [Unknown]
  - Pruritus [Unknown]

NARRATIVE: CASE EVENT DATE: 20221101
